FAERS Safety Report 21948031 (Version 1)
Quarter: 2023Q1

REPORT INFORMATION
  Report Type: Spontaneous
  Country: DK (occurrence: DK)
  Receive Date: 20230203
  Receipt Date: 20230203
  Transmission Date: 20230418
  Serious: Yes (Hospitalization)
  Sender: FDA-Public Use
  Company Number: DK-DKMA-ADR 27362490

PATIENT
  Age: 21 Year
  Sex: Female

DRUGS (3)
  1. GANIRELIX ACETATE [Suspect]
     Active Substance: GANIRELIX ACETATE
     Indication: Infertility female
     Dosage: UNK, STRENGTH: 0.25 MG/0.5 ML, DOSAGE: UNKNOWN
     Route: 065
     Dates: start: 202110
  2. TRIPTORELIN ACETATE [Suspect]
     Active Substance: TRIPTORELIN ACETATE
     Indication: Infertility female
     Dosage: UNK
     Route: 065
     Dates: start: 202110
  3. GONAL-F [Suspect]
     Active Substance: FOLLITROPIN
     Indication: Infertility female
     Dosage: 100 INTERNATIONAL UNIT, DAILY
     Route: 065
     Dates: start: 20211022, end: 20211031

REACTIONS (4)
  - Ovarian hyperstimulation syndrome [Recovered/Resolved]
  - Diarrhoea [Recovered/Resolved]
  - Vomiting [Recovered/Resolved]
  - Abdominal pain [Recovered/Resolved]

NARRATIVE: CASE EVENT DATE: 20211028
